FAERS Safety Report 9519453 (Version 1)
Quarter: 2013Q3

REPORT INFORMATION
  Report Type: Spontaneous
  Country: IT (occurrence: IT)
  Receive Date: 20130912
  Receipt Date: 20130912
  Transmission Date: 20140515
  Serious: Yes (Hospitalization)
  Sender: FDA-Public Use
  Company Number: IT-GLAXOSMITHKLINE-B0921618A

PATIENT
  Age: 96 Year
  Sex: Female

DRUGS (2)
  1. TALAVIR [Suspect]
     Indication: HERPES ZOSTER
     Dosage: 500MG THREE TIMES PER DAY
     Route: 048
     Dates: start: 20121020, end: 20121025
  2. AUGMENTIN [Concomitant]
     Indication: ANTIBIOTIC PROPHYLAXIS
     Dosage: 1G PER DAY
     Route: 048
     Dates: start: 20121020, end: 20121025

REACTIONS (1)
  - Iron deficiency anaemia [Unknown]
